FAERS Safety Report 9595301 (Version 1)
Quarter: 2013Q4

REPORT INFORMATION
  Report Type: Spontaneous
  Country: US (occurrence: US)
  Receive Date: 20131004
  Receipt Date: 20131004
  Transmission Date: 20140711
  Serious: No
  Sender: FDA-Public Use
  Company Number: US-PFIZER INC-2013282871

PATIENT
  Age: 51 Year
  Sex: Male
  Weight: 92.97 kg

DRUGS (3)
  1. VIAGRA [Suspect]
     Indication: ERECTILE DYSFUNCTION
     Dosage: 25 MG, AS NEEDED
     Dates: start: 2012
  2. VIAGRA [Suspect]
     Dosage: 100 MG, AS NEEDED
  3. XANAX [Concomitant]
     Dosage: 3 MG, 1X/DAY

REACTIONS (1)
  - Drug ineffective [Unknown]
